FAERS Safety Report 7507357-3 (Version None)
Quarter: 2011Q2

REPORT INFORMATION
  Report Type: 
  Country: None (occurrence: None)
  Receive Date: 20110526
  Receipt Date: 20110519
  Transmission Date: 20111010
  Serious: Yes (Hospitalization)
  Sender: FDA-Public Use
  Company Number: JP-ABBOTT-11P-087-0718548-00

PATIENT
  Sex: Male
  Weight: 51.2 kg

DRUGS (8)
  1. NAFTOPIDIL [Concomitant]
     Indication: BENIGN PROSTATIC HYPERPLASIA
     Route: 048
     Dates: start: 20110205, end: 20110406
  2. PREDNISOLONE [Suspect]
     Indication: PROSTATE CANCER
     Route: 048
     Dates: start: 20110217, end: 20110406
  3. TAK-700 [Suspect]
     Indication: PRODUCT USED FOR UNKNOWN INDICATION
     Route: 048
     Dates: start: 20110217, end: 20110406
  4. CEFMETAZON [Concomitant]
     Indication: SEPSIS
     Dosage: 1-2G/DAY
     Route: 042
     Dates: start: 20110509, end: 20110517
  5. ALESION [Concomitant]
     Indication: RASH
     Route: 048
     Dates: start: 20110423, end: 20110513
  6. LEUPROLIDE ACETATE [Suspect]
     Indication: PROSTATE CANCER
     Route: 058
     Dates: start: 20090213
  7. MUCOSTA [Concomitant]
     Indication: GASTRITIS
     Route: 048
     Dates: start: 20110404, end: 20110408
  8. FLOMAX [Concomitant]
     Indication: SEPSIS
     Route: 048
     Dates: start: 20110514

REACTIONS (1)
  - PANCREATITIS ACUTE [None]
